FAERS Safety Report 4973506-4 (Version None)
Quarter: 2006Q2

REPORT INFORMATION
  Report Type: 
  Country: None (occurrence: None)
  Receive Date: 20060413
  Receipt Date: 20060413
  Transmission Date: 20061013
  Serious: Yes (Other)
  Sender: FDA-Public Use
  Company Number: None

PATIENT
  Sex: Female
  Weight: 90.7194 kg

DRUGS (2)
  1. ANGIOMAX [Suspect]
     Indication: ANTICOAGULANT THERAPY
     Dosage: SEE IMAGE
     Dates: start: 20060311, end: 20060311
  2. CLOPIDOGREL   600 MG LOADING   PLAVIX [Suspect]
     Indication: ANTIPLATELET THERAPY
     Dosage: SEE IMAGE
     Route: 048
     Dates: start: 20050311, end: 20051011

REACTIONS (2)
  - CARDIAC PROCEDURE COMPLICATION [None]
  - MYOCARDIAL INFARCTION [None]
